FAERS Safety Report 8313977-9 (Version None)
Quarter: 2012Q2

REPORT INFORMATION
  Report Type: 
  Country: None (occurrence: None)
  Receive Date: 20120426
  Receipt Date: 20120206
  Transmission Date: 20120825
  Serious: Yes (Death, Life-Threatening, Hospitalization, Other)
  Sender: FDA-Public Use
  Company Number: CH-PFIZER INC-2005080066

PATIENT
  Sex: Male

DRUGS (13)
  1. NAVOBAN [Concomitant]
     Route: 065
     Dates: start: 20050201, end: 20050301
  2. METHOTREXATE SODIUM [Suspect]
     Indication: ACUTE LYMPHOCYTIC LEUKAEMIA
     Route: 065
     Dates: start: 20050209, end: 20050307
  3. FUNGIZONE [Suspect]
     Indication: ASPERGILLOMA
     Route: 065
     Dates: start: 20050201, end: 20050201
  4. TORSEMIDE [Concomitant]
     Route: 065
     Dates: start: 20050201, end: 20050301
  5. PREDNISONE TAB [Concomitant]
     Route: 065
     Dates: start: 20050209
  6. VFEND [Suspect]
     Indication: ASPERGILLOMA
     Route: 065
     Dates: start: 20050220, end: 20050308
  7. VINCRISTINE SULFATE [Suspect]
     Indication: ACUTE LYMPHOCYTIC LEUKAEMIA
     Route: 065
     Dates: start: 20050209, end: 20050307
  8. METHOTREXATE SODIUM [Suspect]
     Indication: ACUTE LYMPHOCYTIC LEUKAEMIA
     Route: 065
     Dates: start: 20050209, end: 20050307
  9. ASPARAGINASE [Suspect]
     Indication: ACUTE LYMPHOCYTIC LEUKAEMIA
     Route: 065
     Dates: start: 20050209, end: 20050307
  10. TAZOBACTAM [Suspect]
     Indication: ASPERGILLOMA
     Route: 065
     Dates: start: 20050212, end: 20050304
  11. VALTREX [Suspect]
     Indication: ASPERGILLOMA
     Route: 065
     Dates: start: 20050220, end: 20050308
  12. BACTRIM [Concomitant]
     Route: 065
     Dates: start: 20050201, end: 20050301
  13. CYCLOPHOSPHAMIDE [Suspect]
     Indication: ACUTE LYMPHOCYTIC LEUKAEMIA
     Route: 065
     Dates: start: 20050209, end: 20050307

REACTIONS (5)
  - HEPATIC STEATOSIS [None]
  - COMA HEPATIC [None]
  - BLOOD BILIRUBIN INCREASED [None]
  - CHOLESTASIS [None]
  - ALANINE AMINOTRANSFERASE INCREASED [None]
